FAERS Safety Report 4551739-9 (Version None)
Quarter: 2005Q1

REPORT INFORMATION
  Report Type: 
  Country: None (occurrence: None)
  Receive Date: 20050113
  Receipt Date: 20040820
  Transmission Date: 20050727
  Serious: Yes (Death, Life-Threatening, Hospitalization, Disabling, Other)
  Sender: FDA-Public Use
  Company Number: US-GLAXOSMITHKLINE-A0522919A

PATIENT
  Age: 44 Year
  Sex: Male
  Weight: 115 kg

DRUGS (8)
  1. LEXIVA [Suspect]
     Indication: HIV INFECTION
     Dosage: 700MG TWICE PER DAY
     Route: 048
     Dates: start: 20040525, end: 20040531
  2. VIREAD [Concomitant]
     Indication: HIV INFECTION
     Dosage: 300MG PER DAY
     Dates: start: 20040525, end: 20040531
  3. EPIVIR [Concomitant]
     Indication: HIV INFECTION
     Dosage: 300MG PER DAY
     Route: 048
     Dates: start: 20040525, end: 20040531
  4. RITONAVIR [Concomitant]
     Indication: HIV INFECTION
     Dosage: 100MG TWICE PER DAY
     Dates: start: 20040525, end: 20040531
  5. BACTRIM [Concomitant]
     Indication: ILL-DEFINED DISORDER
  6. ZITHROMAX [Concomitant]
     Indication: ILL-DEFINED DISORDER
  7. EFFEXOR [Concomitant]
     Indication: ILL-DEFINED DISORDER
  8. TYLENOL [Concomitant]
     Indication: BACK PAIN
     Dosage: 2000MG TWICE PER DAY

REACTIONS (22)
  - ABDOMINAL PAIN [None]
  - ABDOMINAL PAIN UPPER [None]
  - ADVERSE DRUG REACTION [None]
  - ANOREXIA [None]
  - ASCITES [None]
  - ASTHENIA [None]
  - CHROMATURIA [None]
  - COAGULOPATHY [None]
  - CONFUSIONAL STATE [None]
  - DRUG TOXICITY [None]
  - ENCEPHALOPATHY [None]
  - FATIGUE [None]
  - HEPATIC FAILURE [None]
  - HEPATIC NEOPLASM MALIGNANT [None]
  - HEPATIC VEIN OCCLUSION [None]
  - INFECTION [None]
  - JAUNDICE [None]
  - MENTAL STATUS CHANGES [None]
  - NAUSEA [None]
  - PERIPANCREATIC FLUID COLLECTION [None]
  - VASCULAR OCCLUSION [None]
  - VOMITING [None]
